FAERS Safety Report 7029546-7 (Version None)
Quarter: 2010Q3

REPORT INFORMATION
  Report Type: 
  Country: None (occurrence: None)
  Receive Date: 20100930
  Receipt Date: 20100921
  Transmission Date: 20110219
  Serious: Yes (Hospitalization, Other)
  Sender: FDA-Public Use
  Company Number: AXC-2010-000250

PATIENT
  Age: 58 Year
  Sex: Female
  Weight: 65.8 kg

DRUGS (3)
  1. ULTRASE MT20 [Suspect]
     Indication: PANCREATIC INSUFFICIENCY
     Dosage: 20000 USP, PER MEAL, ORAL
     Route: 048
     Dates: start: 20090101, end: 20100901
  2. UNSPECIFIED PAIN KILLERS [Concomitant]
  3. THYROID PREPARATIONS [Concomitant]

REACTIONS (3)
  - BREAST CANCER [None]
  - DIARRHOEA [None]
  - POST PROCEDURAL INFECTION [None]
